FAERS Safety Report 9272811 (Version 1)
Quarter: 2013Q2

REPORT INFORMATION
  Report Type: Spontaneous
  Country: US (occurrence: US)
  Receive Date: 20130506
  Receipt Date: 20130506
  Transmission Date: 20140414
  Serious: No
  Sender: FDA-Public Use
  Company Number: US-ASTRAZENECA-2012SE27220

PATIENT
  Age: 90 Year
  Sex: Male

DRUGS (1)
  1. PRILOSEC OTC [Suspect]
     Route: 048
     Dates: start: 20120413, end: 20120414

REACTIONS (6)
  - Bile output increased [Recovered/Resolved]
  - Gastrooesophageal reflux disease [Recovered/Resolved]
  - Condition aggravated [Recovered/Resolved]
  - Feeling hot [Not Recovered/Not Resolved]
  - Insomnia [Not Recovered/Not Resolved]
  - Abdominal discomfort [Not Recovered/Not Resolved]
